FAERS Safety Report 21016158 (Version 1)
Quarter: 2022Q2

REPORT INFORMATION
  Report Type: Spontaneous
  Country: US (occurrence: None)
  Receive Date: 20220627
  Receipt Date: 20220627
  Transmission Date: 20220721
  Serious: No
  Sender: FDA-Public Use
  Company Number: None

PATIENT
  Sex: Female

DRUGS (5)
  1. HUMIRA [Suspect]
     Active Substance: ADALIMUMAB
     Indication: Colitis ulcerative
     Dosage: OTHER QUANTITY : SEE EVENT;?FREQUENCY : AS DIRECTED;?
     Route: 058
     Dates: start: 20220511
  2. NORETHINDRONE [Concomitant]
     Active Substance: NORETHINDRONE
  3. PROBIOTICS NOS [Concomitant]
     Active Substance: PROBIOTICS NOS
  4. METFORMIN HYDROCHLORIDE [Concomitant]
     Active Substance: METFORMIN HYDROCHLORIDE
  5. MESALAMINE [Concomitant]
     Active Substance: MESALAMINE

REACTIONS (1)
  - Drug ineffective [None]
